FAERS Safety Report 4845946-5 (Version None)
Quarter: 2005Q4

REPORT INFORMATION
  Report Type: 
  Country: None (occurrence: None)
  Receive Date: 20051202
  Receipt Date: 20051202
  Transmission Date: 20060501
  Serious: Yes (Life-Threatening, Disabling)
  Sender: FDA-Public Use
  Company Number: None

PATIENT
  Age: 35 Year
  Sex: Male
  Weight: 94 kg

DRUGS (2)
  1. ASACOL [Suspect]
     Indication: INFLAMMATORY BOWEL DISEASE
     Dosage: TWO TID INITIALLY BUT ONE OR TWO DAILY OR BID INTER
     Dates: start: 19990101
  2. ASACOL [Suspect]
     Indication: INFLAMMATORY BOWEL DISEASE
     Dosage: TWO TID INITIALLY BUT ONE OR TWO DAILY OR BID INTER
     Dates: start: 20030101

REACTIONS (1)
  - RENAL FAILURE [None]
